FAERS Safety Report 10196533 (Version 2)
Quarter: 2014Q3

REPORT INFORMATION
  Report Type: Spontaneous
  Country: US (occurrence: None)
  Receive Date: 20140522
  Receipt Date: 20140728
  Transmission Date: 20150326
  Serious: Yes (Disabling, Other)
  Sender: FDA-Public Use
  Company Number: 2014-19596

PATIENT
  Age: 80 Year
  Sex: Male

DRUGS (1)
  1. EYLEA [Suspect]
     Active Substance: AFLIBERCEPT
     Indication: AGE-RELATED MACULAR DEGENERATION
     Route: 031
     Dates: start: 20130109, end: 20140415

REACTIONS (4)
  - Vitritis [None]
  - Blindness [None]
  - Non-infectious endophthalmitis [None]
  - Visual acuity reduced transiently [None]

NARRATIVE: CASE EVENT DATE: 20140416
